FAERS Safety Report 9736732 (Version 1)
Quarter: 2013Q4

REPORT INFORMATION
  Report Type: Report from Study
  Country: MX (occurrence: MX)
  Receive Date: 20131206
  Receipt Date: 20131206
  Transmission Date: 20140711
  Serious: Yes (Other)
  Sender: FDA-Public Use
  Company Number: PHHY2013MX139229

PATIENT
  Age: 58 Year
  Sex: Female

DRUGS (5)
  1. CO-DIOVAN [Suspect]
     Indication: HYPERTENSION
     Dosage: 1 DF (320MG VALS/ 25MG HCTZ), DAILY
     Route: 048
     Dates: end: 201309
  2. VALSARTAN [Suspect]
     Dosage: 1 DF (50MG), Q8H
  3. ENALAPRIL [Suspect]
     Dosage: 1 DF, BID, EACH 12 HOURS
  4. METFORMIN [Concomitant]
     Dosage: 2 DF (850MG), Q12H
     Dates: start: 2009
  5. DIURETICS [Concomitant]
     Dosage: 1 UKN, DAILY
     Dates: start: 2009

REACTIONS (9)
  - Diabetes mellitus [Not Recovered/Not Resolved]
  - Hypertension [Not Recovered/Not Resolved]
  - Feeling abnormal [Unknown]
  - Pain [Not Recovered/Not Resolved]
  - Memory impairment [Not Recovered/Not Resolved]
  - Palpitations [Not Recovered/Not Resolved]
  - Dizziness [Not Recovered/Not Resolved]
  - Vomiting [Not Recovered/Not Resolved]
  - Nausea [Not Recovered/Not Resolved]
